FAERS Safety Report 15237624 (Version 2)
Quarter: 2018Q3

REPORT INFORMATION
  Report Type: Report from Study
  Country: CO (occurrence: CO)
  Receive Date: 20180803
  Receipt Date: 20180806
  Transmission Date: 20181010
  Serious: Yes (Hospitalization)
  Sender: FDA-Public Use
  Company Number: CO-ACTELION-A-CH2018-176855

PATIENT
  Age: 30 Year
  Sex: Female
  Weight: 40 kg

DRUGS (1)
  1. OPSUMIT [Suspect]
     Active Substance: MACITENTAN
     Indication: PULMONARY ARTERIAL HYPERTENSION
     Dosage: 10 MG, QD
     Route: 048
     Dates: start: 20151101

REACTIONS (6)
  - Viral infection [Unknown]
  - Pain in extremity [Unknown]
  - Hospitalisation [Unknown]
  - Malaise [Unknown]
  - Back pain [Unknown]
  - Pyrexia [Unknown]

NARRATIVE: CASE EVENT DATE: 20180725
